FAERS Safety Report 18405386 (Version 3)
Quarter: 2020Q4

REPORT INFORMATION
  Report Type: Spontaneous
  Country: JP (occurrence: JP)
  Receive Date: 20201020
  Receipt Date: 20201223
  Transmission Date: 20210114
  Serious: Yes (Hospitalization, Other)
  Sender: FDA-Public Use
  Company Number: JP-TAKEDA-2020TUS043700

PATIENT
  Age: 77 Year
  Sex: Male

DRUGS (12)
  1. ONON [Concomitant]
     Active Substance: PRANLUKAST
     Indication: ASTHMA
     Dosage: 225 MILLIGRAM, BID
     Route: 048
     Dates: start: 20190522
  2. LOXONIN [Concomitant]
     Active Substance: LOXOPROFEN SODIUM
     Indication: BACK PAIN
     Dosage: 60 MILLIGRAM, QD
     Route: 048
     Dates: start: 20190522
  3. GASTER [Concomitant]
     Active Substance: FAMOTIDINE
     Indication: GASTROOESOPHAGEAL REFLUX DISEASE
     Dosage: 20 MILLIGRAM, QD
     Route: 048
     Dates: start: 20190522
  4. FEBURIC [Suspect]
     Active Substance: FEBUXOSTAT
     Indication: GOUT
     Dosage: 10 MILLIGRAM, QD
     Route: 048
     Dates: start: 20200909, end: 20200927
  5. BAYASPIRIN [Concomitant]
     Active Substance: ASPIRIN
     Dosage: 100 MILLIGRAM, QD
     Route: 048
     Dates: start: 20190522
  6. HYALEIN [Concomitant]
     Active Substance: HYALURONATE SODIUM
     Dosage: UNK
     Route: 047
     Dates: start: 20190522
  7. SPIRIVA [Concomitant]
     Active Substance: TIOTROPIUM BROMIDE MONOHYDRATE
     Indication: ASTHMA
     Dosage: 5 MICROGRAM, QD
     Route: 055
     Dates: start: 20190522
  8. BEPOTASTINE BESILATE [Concomitant]
     Active Substance: BEPOTASTINE BESYLATE
     Indication: RHINITIS ALLERGIC
     Dosage: 10 MILLIGRAM, BID
     Route: 048
     Dates: start: 20190522
  9. DEPAS [ETIZOLAM] [Concomitant]
     Active Substance: ETIZOLAM
     Indication: NEUROSIS
     Dosage: 0.5 MILLIGRAM, BID
     Route: 048
     Dates: start: 20190522
  10. FLUTIFORM [Concomitant]
     Active Substance: FLUTICASONE PROPIONATE\FORMOTEROL FUMARATE
     Indication: ASTHMA
     Dosage: 2 DOSAGE FORM, BID
     Route: 055
     Dates: start: 20190522
  11. MEPTIN [Concomitant]
     Active Substance: PROCATEROL HYDROCHLORIDE
     Indication: ASTHMA
     Dosage: 25 MICROGRAM, BID
     Route: 048
     Dates: start: 20190522
  12. KARY UNI [PIRENOXINE] [Concomitant]
     Dosage: UNK
     Route: 047
     Dates: start: 20190522

REACTIONS (1)
  - Autoimmune blistering disease [Unknown]

NARRATIVE: CASE EVENT DATE: 20200923
